FAERS Safety Report 7559848-7 (Version None)
Quarter: 2011Q2

REPORT INFORMATION
  Report Type: 
  Country: None (occurrence: None)
  Receive Date: 20110621
  Receipt Date: 20110617
  Transmission Date: 20111010
  Serious: Yes (Life-Threatening)
  Sender: FDA-Public Use
  Company Number: PHHY2011GB53389

PATIENT
  Age: 55 Year
  Sex: Female

DRUGS (2)
  1. SAXAGLIPTIN [Suspect]
  2. METFORMIN HCL [Suspect]
     Route: 048
     Dates: start: 20100526

REACTIONS (1)
  - ACUTE LYMPHOCYTIC LEUKAEMIA [None]
